FAERS Safety Report 6880996-9 (Version None)
Quarter: 2010Q3

REPORT INFORMATION
  Report Type: 
  Country: None (occurrence: None)
  Receive Date: 20100727
  Receipt Date: 20100719
  Transmission Date: 20110219
  Serious: Yes (Hospitalization)
  Sender: FDA-Public Use
  Company Number: US-BIOGENIDEC-2010BI003742

PATIENT
  Age: 48 Year
  Sex: Male
  Weight: 115 kg

DRUGS (1)
  1. TYSABRI [Suspect]
     Indication: MULTIPLE SCLEROSIS
     Route: 042
     Dates: start: 20100105

REACTIONS (11)
  - ABDOMINAL DISCOMFORT [None]
  - DISORIENTATION [None]
  - ESCHERICHIA INFECTION [None]
  - ILEUS PARALYTIC [None]
  - INCISION SITE PAIN [None]
  - MEMORY IMPAIRMENT [None]
  - MULTIPLE SCLEROSIS RELAPSE [None]
  - SPINAL FUSION SURGERY [None]
  - STAPHYLOCOCCAL INFECTION [None]
  - STREPTOCOCCAL INFECTION [None]
  - URTICARIA [None]
